FAERS Safety Report 24050416 (Version 2)
Quarter: 2024Q3

REPORT INFORMATION
  Report Type: Spontaneous
  Country: GB (occurrence: GB)
  Receive Date: 20240704
  Receipt Date: 20240710
  Transmission Date: 20241017
  Serious: Yes (Other)
  Sender: AUROBINDO
  Company Number: GB-AUROBINDO-AUR-APL-2024-032396

PATIENT
  Age: 42 Year
  Sex: Female

DRUGS (2)
  1. ACYCLOVIR [Suspect]
     Active Substance: ACYCLOVIR
     Indication: Genital herpes
     Dosage: 400 MILLIGRAM, TWO TIMES A DAY
     Route: 065
  2. ACYCLOVIR [Suspect]
     Active Substance: ACYCLOVIR
     Dosage: 400 MILLIGRAM, 3 TIMES A DAY
     Route: 065

REACTIONS (1)
  - Drug ineffective [Unknown]
